FAERS Safety Report 9841161 (Version 1)
Quarter: 2013Q4

REPORT INFORMATION
  Report Type: Spontaneous
  Country: US (occurrence: None)
  Receive Date: 20131223
  Receipt Date: 20131223
  Transmission Date: 20140711
  Serious: No
  Sender: FDA-Public Use
  Company Number: 217890LEO

PATIENT
  Age: 58 Year
  Sex: Male

DRUGS (2)
  1. PICATO [Suspect]
     Indication: ACTINIC KERATOSIS
     Route: 061
     Dates: start: 20120528, end: 20120531
  2. EMOLLIENT(EMOLLIENT AND PROTECTIVES) [Concomitant]

REACTIONS (4)
  - Application site erythema [None]
  - Application site scab [None]
  - Application site swelling [None]
  - Incorrect drug administration duration [None]
